FAERS Safety Report 18009147 (Version 1)
Quarter: 2020Q3

REPORT INFORMATION
  Report Type: Spontaneous
  Country: US (occurrence: US)
  Receive Date: 20200710
  Receipt Date: 20200710
  Transmission Date: 20201103
  Serious: Yes (Other)
  Sender: FDA-Public Use
  Company Number: US-SAOL THERAPEUTICS-2019SAO00375

PATIENT
  Age: 44 Year
  Sex: Male
  Weight: 90.7 kg

DRUGS (4)
  1. LIORESAL [Suspect]
     Active Substance: BACLOFEN
     Dosage: 99.9 ?G, \DAY
     Route: 037
     Dates: start: 20190909, end: 2019
  2. LIORESAL [Suspect]
     Active Substance: BACLOFEN
     Dosage: 405 ?G, \DAY (ALSO REPORTED AS 400 ?G/DAY)
     Route: 037
     Dates: end: 20190909
  3. GABLOFEN [Suspect]
     Active Substance: BACLOFEN
     Dosage: 405.3 ?G, \DAY
     Route: 037
  4. LIORESAL [Suspect]
     Active Substance: BACLOFEN
     Dosage: 405.3 ?G, \DAY
     Route: 037
     Dates: start: 2019

REACTIONS (2)
  - Device infusion issue [Recovered/Resolved]
  - Hypertonia [Unknown]

NARRATIVE: CASE EVENT DATE: 20190828
